FAERS Safety Report 12309549 (Version 1)
Quarter: 2016Q2

REPORT INFORMATION
  Report Type: Spontaneous
  Country: US (occurrence: None)
  Receive Date: 20160426
  Receipt Date: 20160426
  Transmission Date: 20160815
  Serious: No
  Sender: FDA-Public Use
  Company Number: None

PATIENT
  Age: 6 Year
  Sex: Male

DRUGS (6)
  1. AFINITOR [Suspect]
     Active Substance: EVEROLIMUS
     Indication: BRAIN NEOPLASM MALIGNANT
     Route: 048
     Dates: start: 20140904
  2. SEROQUEL [Concomitant]
     Active Substance: QUETIAPINE FUMARATE
  3. AFINITOR [Suspect]
     Active Substance: EVEROLIMUS
     Indication: MALIGNANT NEOPLASM OF SPINAL CORD
     Route: 048
     Dates: start: 20140904
  4. RISPERDONE [Concomitant]
     Active Substance: RISPERIDONE
  5. DEPAKOLE [Concomitant]
  6. DILANTIN [Concomitant]
     Active Substance: PHENYTOIN

REACTIONS (2)
  - Antibiotic therapy [None]
  - Drug dose omission [None]

NARRATIVE: CASE EVENT DATE: 201604
